FAERS Safety Report 8620163 (Version 2)
Quarter: 2013Q1

REPORT INFORMATION
  Report Type: Spontaneous
  Country: FR (occurrence: FR)
  Receive Date: 20120618
  Receipt Date: 20130201
  Transmission Date: 20140127
  Serious: Yes (Disabling)
  Sender: FDA-Public Use
  Company Number: PHHY2012FR050577

PATIENT
  Age: 39 Year
  Sex: Male

DRUGS (6)
  1. CERTICAN [Suspect]
     Dosage: 0.75 MG,  3 DF BID
     Route: 048
     Dates: start: 201102
  2. LASILIX [Concomitant]
     Dosage: 40 MG, QD
  3. ESOMEPRAZOLE [Concomitant]
     Dosage: 40 MG, QD
  4. XANAX [Concomitant]
     Dosage: 0.25 MG, QD
  5. CORTANCYL [Concomitant]
     Dosage: 5 MG, QD
  6. COVERSYL [Concomitant]
     Dosage: 5 MG, QD

REACTIONS (5)
  - Testicular disorder [Unknown]
  - Teratospermia [Unknown]
  - Asthenospermia [Unknown]
  - Spermatozoa progressive motility decreased [Unknown]
  - Hypospermia [Unknown]
